FAERS Safety Report 20126793 (Version 1)
Quarter: 2021Q4

REPORT INFORMATION
  Report Type: Spontaneous
  Country: US (occurrence: None)
  Receive Date: 20211129
  Receipt Date: 20211129
  Transmission Date: 20220303
  Serious: No
  Sender: FDA-Public Use
  Company Number: None

PATIENT
  Age: 29 Year
  Sex: Male
  Weight: 71.67 kg

DRUGS (1)
  1. PRAZOSIN HYDROCHLORIDE [Suspect]
     Active Substance: PRAZOSIN HYDROCHLORIDE
     Dosage: OTHER FREQUENCY : BEDTIME ;?
     Route: 048
     Dates: start: 20211002, end: 20211118

REACTIONS (2)
  - Flushing [None]
  - Paraesthesia [None]

NARRATIVE: CASE EVENT DATE: 20211118
